FAERS Safety Report 19278935 (Version 1)
Quarter: 2021Q2

REPORT INFORMATION
  Report Type: Spontaneous
  Country: RO (occurrence: RO)
  Receive Date: 20210520
  Receipt Date: 20210520
  Transmission Date: 20210717
  Serious: Yes (Hospitalization, Other)
  Sender: FDA-Public Use
  Company Number: RO-AMNEAL PHARMACEUTICALS-2021-AMRX-01688

PATIENT
  Age: 42 Year
  Sex: Female

DRUGS (1)
  1. ALBENZA [Suspect]
     Active Substance: ALBENDAZOLE
     Indication: RASH PRURITIC
     Dosage: 400 MILLIGRAM, QD
     Route: 065

REACTIONS (19)
  - Cholestasis [Recovering/Resolving]
  - Hypoproteinaemia [Recovering/Resolving]
  - International normalised ratio increased [Recovering/Resolving]
  - Abdominal pain upper [Recovering/Resolving]
  - Jaundice [Recovering/Resolving]
  - Self-medication [Unknown]
  - Faeces pale [Recovering/Resolving]
  - Oedema peripheral [Recovering/Resolving]
  - Hepatic encephalopathy [Recovering/Resolving]
  - Hypoalbuminaemia [Recovering/Resolving]
  - Chromaturia [Recovering/Resolving]
  - Skin hyperpigmentation [Recovering/Resolving]
  - Nausea [Recovering/Resolving]
  - Acute hepatic failure [Recovering/Resolving]
  - Hepatic cytolysis [Recovering/Resolving]
  - Urobilinogen urine [Recovering/Resolving]
  - Drug-induced liver injury [Recovering/Resolving]
  - Vomiting [Recovering/Resolving]
  - Hyperbilirubinaemia [Recovered/Resolved]
